FAERS Safety Report 8956216 (Version 2)
Quarter: 2012Q4

REPORT INFORMATION
  Report Type: 
  Country: DE (occurrence: DE)
  Receive Date: 20121210
  Receipt Date: 20121219
  Transmission Date: 20130627
  Serious: Yes (Hospitalization, Other)
  Sender: FDA-Public Use
  Company Number: GXKR2012DE003765

PATIENT
  Age: 12 Year
  Sex: Female
  Weight: 63 kg

DRUGS (2)
  1. FLUOXETIN [Suspect]
     Dosage: 20 mg, QD
     Route: 048
     Dates: start: 201012
  2. SEROQUEL [Suspect]
     Dosage: 100 mg, QD
     Route: 048
     Dates: start: 201012

REACTIONS (2)
  - Papilloedema [Unknown]
  - Oedema [Unknown]
